FAERS Safety Report 4356234-8 (Version None)
Quarter: 2004Q2

REPORT INFORMATION
  Report Type: 
  Country: None (occurrence: None)
  Receive Date: 20040511
  Receipt Date: 20040430
  Transmission Date: 20050107
  Serious: Yes (Hospitalization)
  Sender: FDA-Public Use
  Company Number: PT-MERCK-0405PRT00002

PATIENT
  Age: 79 Year
  Sex: Female

DRUGS (2)
  1. MODURETIC 5-50 [Suspect]
     Indication: HYPERTENSION
     Route: 048
     Dates: end: 20031227
  2. CANDESARTAN CILEXETIL AND HYDROCHLOROTHIAZIDE [Suspect]
     Indication: HYPERTENSION
     Route: 048

REACTIONS (5)
  - CONVULSION [None]
  - DRUG INTERACTION [None]
  - HYPOKALAEMIA [None]
  - HYPONATRAEMIA [None]
  - RHABDOMYOLYSIS [None]
